FAERS Safety Report 7298703-7 (Version None)
Quarter: 2011Q1

REPORT INFORMATION
  Report Type: 
  Country: None (occurrence: None)
  Receive Date: 20110204
  Receipt Date: 20110127
  Transmission Date: 20110831
  Serious: Yes (Other)
  Sender: FDA-Public Use
  Company Number: 2011SP004207

PATIENT
  Sex: Female

DRUGS (1)
  1. NASONEX [Suspect]

REACTIONS (1)
  - RETINOPATHY [None]
